FAERS Safety Report 20627750 (Version 1)
Quarter: 2022Q1

REPORT INFORMATION
  Report Type: Spontaneous
  Country: US (occurrence: US)
  Receive Date: 20220323
  Receipt Date: 20220323
  Transmission Date: 20220423
  Serious: Yes (Other)
  Sender: FDA-Public Use
  Company Number: US-GLAXOSMITHKLINE-US2022GSK048123

PATIENT
  Sex: Male

DRUGS (16)
  1. ZANTAC [Suspect]
     Active Substance: RANITIDINE HYDROCHLORIDE
     Indication: Gastric ulcer
     Dosage: 150 MG, BID
     Route: 065
     Dates: start: 199101, end: 201801
  2. ZANTAC [Suspect]
     Active Substance: RANITIDINE HYDROCHLORIDE
     Dosage: UNKNOWN AT THIS TIME, BID
     Route: 065
     Dates: start: 199101, end: 201801
  3. ZANTAC [Suspect]
     Active Substance: RANITIDINE HYDROCHLORIDE
     Indication: Gastric ulcer
     Dosage: 150 MG, BID
     Route: 065
     Dates: start: 199101, end: 201801
  4. ZANTAC [Suspect]
     Active Substance: RANITIDINE HYDROCHLORIDE
     Dosage: UNKNOWN AT THIS TIME, BID
     Route: 065
     Dates: start: 199101, end: 201801
  5. RANITIDINE [Suspect]
     Active Substance: RANITIDINE
     Indication: Gastric ulcer
     Dosage: 150 MG, BID
     Route: 065
     Dates: start: 199101, end: 201801
  6. RANITIDINE [Suspect]
     Active Substance: RANITIDINE
     Dosage: 300 MG, BID
     Route: 065
     Dates: start: 199101, end: 201801
  7. RANITIDINE [Suspect]
     Active Substance: RANITIDINE
     Dosage: UNKNOWN AT THIS TIME, BID
     Route: 065
     Dates: start: 199101, end: 201801
  8. RANITIDINE [Suspect]
     Active Substance: RANITIDINE
     Indication: Gastric ulcer
     Dosage: 150 MG, BID
     Route: 065
     Dates: start: 199101, end: 201801
  9. RANITIDINE [Suspect]
     Active Substance: RANITIDINE
     Dosage: 300 MG, BID
     Route: 065
     Dates: start: 199101, end: 201801
  10. RANITIDINE [Suspect]
     Active Substance: RANITIDINE
     Dosage: UNKNOWN AT THIS TIME, BID
     Route: 065
     Dates: start: 199101, end: 201801
  11. RANITIDINE [Suspect]
     Active Substance: RANITIDINE
     Indication: Gastric ulcer
     Dosage: 150 MG, BID
     Route: 065
     Dates: start: 199101, end: 201801
  12. RANITIDINE [Suspect]
     Active Substance: RANITIDINE
     Dosage: 300 MG, BID
     Route: 065
     Dates: start: 199101, end: 201801
  13. RANITIDINE [Suspect]
     Active Substance: RANITIDINE
     Dosage: UNKNOWN AT THIS TIME, BID
     Route: 065
     Dates: start: 199101, end: 201801
  14. RANITIDINE [Suspect]
     Active Substance: RANITIDINE
     Indication: Gastric ulcer
     Dosage: 150 MG, BID
     Route: 065
     Dates: start: 199101, end: 201801
  15. RANITIDINE [Suspect]
     Active Substance: RANITIDINE
     Dosage: 300 MG, BID
     Route: 065
     Dates: start: 199101, end: 201801
  16. RANITIDINE [Suspect]
     Active Substance: RANITIDINE
     Dosage: UNKNOWN AT THIS TIME, BID
     Route: 065
     Dates: start: 199101, end: 201801

REACTIONS (1)
  - Prostate cancer [Unknown]
